FAERS Safety Report 6948631-9 (Version None)
Quarter: 2010Q3

REPORT INFORMATION
  Report Type: 
  Country: None (occurrence: None)
  Receive Date: 20100828
  Receipt Date: 20091105
  Transmission Date: 20110219
  Serious: No
  Sender: FDA-Public Use
  Company Number: US-ABBOTT-09P-163-0607452-00

PATIENT
  Sex: Female
  Weight: 61.744 kg

DRUGS (8)
  1. NIASPAN [Suspect]
     Indication: BLOOD CHOLESTEROL INCREASED
     Dosage: EVERY NIGHT
     Dates: start: 20091028
  2. NIASPAN [Suspect]
     Dates: start: 20091001, end: 20091027
  3. LIPITOR [Concomitant]
     Indication: BLOOD CHOLESTEROL INCREASED
  4. PREMPRO [Concomitant]
     Indication: MENOPAUSE
  5. TOPAMAX [Concomitant]
     Indication: MIGRAINE
  6. NEXIUM [Concomitant]
     Indication: GASTRIC ULCER
  7. ASPIRIN [Concomitant]
     Indication: BLOOD CHOLESTEROL INCREASED
  8. WELLBUTRIN [Concomitant]
     Indication: HOT FLUSH

REACTIONS (1)
  - PRURITUS [None]
